FAERS Safety Report 4750221-3 (Version None)
Quarter: 2005Q3

REPORT INFORMATION
  Report Type: 
  Country: None (occurrence: None)
  Receive Date: 20050818
  Receipt Date: 20050808
  Transmission Date: 20060218
  Serious: Yes (Hospitalization)
  Sender: FDA-Public Use
  Company Number: 2005102187

PATIENT
  Age: 55 Year
  Sex: Female

DRUGS (6)
  1. GENOTROPIN [Suspect]
     Indication: BLOOD GROWTH HORMONE DECREASED
     Dosage: 0.6 MG (0.6 MG, ONCE DAILY), SUBCUTANEOUS
     Route: 058
     Dates: start: 19980513
  2. LEVAXIN (LEVOTHYROXINE SODIUM) [Concomitant]
  3. CORTISONE ACETATE [Concomitant]
  4. ZOCOR [Concomitant]
  5. PROGYNOVA (ESTRADIOL VALERATE) [Concomitant]
  6. VITAMIN B12 [Concomitant]

REACTIONS (2)
  - GENITAL CYST [None]
  - OSTEOPOROSIS [None]
